FAERS Safety Report 4799746-5 (Version None)
Quarter: 2005Q4

REPORT INFORMATION
  Report Type: 
  Country: None (occurrence: None)
  Receive Date: 20051011
  Receipt Date: 20051011
  Transmission Date: 20060501
  Serious: Yes (Hospitalization)
  Sender: FDA-Public Use
  Company Number: None

PATIENT
  Sex: Female

DRUGS (2)
  1. MIDRIN [Suspect]
     Indication: MIGRAINE
     Dosage: PO -[PRIOR TO ADMISSION]
     Route: 048
  2. PERIACTIN [Suspect]
     Indication: MIGRAINE
     Dosage: PO -[PRIOR TO ADMISSION]
     Route: 048

REACTIONS (3)
  - RASH [None]
  - RASH ERYTHEMATOUS [None]
  - RASH PRURITIC [None]
